FAERS Safety Report 6307777-9 (Version None)
Quarter: 2009Q3

REPORT INFORMATION
  Report Type: 
  Country: None (occurrence: None)
  Receive Date: 20090813
  Receipt Date: 20090805
  Transmission Date: 20100115
  Serious: Yes (Hospitalization)
  Sender: FDA-Public Use
  Company Number: US-NOVOPROD-290266

PATIENT
  Age: 11 Year
  Sex: Male

DRUGS (4)
  1. NOVOLOG [Suspect]
     Indication: TYPE 1 DIABETES MELLITUS
     Dosage: 5 IU, TID
     Route: 058
     Dates: start: 20090201, end: 20090505
  2. NOVOLOG [Suspect]
     Dosage: 8 IU, TID
     Route: 058
     Dates: start: 20090505, end: 20090508
  3. NOVOLOG [Suspect]
     Dosage: 5 IU, TID
     Route: 058
     Dates: start: 20090508
  4. ADDERALL 10 [Concomitant]
     Indication: ATTENTION DEFICIT/HYPERACTIVITY DISORDER
     Route: 048

REACTIONS (2)
  - BLOOD GLUCOSE INCREASED [None]
  - TOOTH ABSCESS [None]
